FAERS Safety Report 6750403-5 (Version None)
Quarter: 2010Q2

REPORT INFORMATION
  Report Type: 
  Country: None (occurrence: None)
  Receive Date: 20100527
  Receipt Date: 20100512
  Transmission Date: 20101027
  Serious: Yes (Death)
  Sender: FDA-Public Use
  Company Number: AE 2010-061

PATIENT
  Age: 57 Year
  Sex: Male
  Weight: 55.7924 kg

DRUGS (1)
  1. FAZACLO ODT [Suspect]
     Indication: SCHIZOPHRENIA
     Dosage: 400MG DAILY PO
     Route: 048
     Dates: start: 20090406

REACTIONS (5)
  - DIARRHOEA [None]
  - GASTROINTESTINAL OBSTRUCTION [None]
  - INFLUENZA LIKE ILLNESS [None]
  - PNEUMONIA [None]
  - WEIGHT DECREASED [None]
